FAERS Safety Report 4293401-6 (Version None)
Quarter: 2004Q1

REPORT INFORMATION
  Report Type: 
  Country: None (occurrence: None)
  Receive Date: 20040126
  Receipt Date: 20031107
  Transmission Date: 20041129
  Serious: No
  Sender: FDA-Public Use
  Company Number: USA031151761

PATIENT
  Age: 78 Year
  Sex: Female

DRUGS (2)
  1. FORTEO [Suspect]
     Dates: start: 20031029
  2. FLAGYL [Concomitant]

REACTIONS (5)
  - ABDOMINAL DISTENSION [None]
  - CHILLS [None]
  - FEELING COLD [None]
  - HEADACHE [None]
  - MUSCLE CRAMP [None]
